FAERS Safety Report 16003633 (Version 8)
Quarter: 2019Q2

REPORT INFORMATION
  Report Type: Spontaneous
  Country: US (occurrence: US)
  Receive Date: 20190226
  Receipt Date: 20190619
  Transmission Date: 20190711
  Serious: Yes (Disabling, Other)
  Sender: FDA-Public Use
  Company Number: US-PFIZER INC-2019070593

PATIENT
  Age: 67 Year
  Sex: Female
  Weight: 60 kg

DRUGS (6)
  1. LYRICA [Suspect]
     Active Substance: PREGABALIN
     Dosage: 100 MG, 3X/DAY (EVERY 8 HOURS)
     Dates: start: 2019, end: 20190517
  2. LYRICA [Suspect]
     Active Substance: PREGABALIN
     Dosage: 75 MG, 3X/DAY (TAKE HER PILLS 3 TIMES A DAY)
     Dates: start: 2019, end: 2019
  3. IBUPROFEN. [Concomitant]
     Active Substance: IBUPROFEN
     Dosage: UNK
  4. LYRICA [Suspect]
     Active Substance: PREGABALIN
     Indication: DIABETIC NEUROPATHY
     Dosage: UNK, 3X/DAY (REPORTED AS FOR 1 YEAR)
     Dates: start: 2018
  5. LYRICA [Suspect]
     Active Substance: PREGABALIN
     Indication: SPINAL FRACTURE
     Dosage: UNK, 3X/DAY
     Route: 048
     Dates: start: 201902, end: 2019
  6. IBUPROFEN. [Concomitant]
     Active Substance: IBUPROFEN
     Indication: BACK PAIN
     Dosage: UNK

REACTIONS (12)
  - Asthenia [Unknown]
  - Malaise [Unknown]
  - Feeling of despair [Unknown]
  - Fall [Not Recovered/Not Resolved]
  - Confusional state [Unknown]
  - Spinal fracture [Unknown]
  - Urinary tract infection [Recovered/Resolved]
  - Constipation [Unknown]
  - Spinal pain [Not Recovered/Not Resolved]
  - Pain in extremity [Not Recovered/Not Resolved]
  - Muscle spasms [Unknown]
  - Pain [Unknown]

NARRATIVE: CASE EVENT DATE: 2019
